FAERS Safety Report 8032759 (Version 2)
Quarter: 2012Q4

REPORT INFORMATION
  Report Type: 
  Country: US (occurrence: US)
  Receive Date: 20110713
  Receipt Date: 20121119
  Transmission Date: 20130627
  Serious: Yes (Hospitalization, Other)
  Sender: FDA-Public Use
  Company Number: US-ELI_LILLY_AND_COMPANY-US201107002479

PATIENT
  Age: 58 Year
  Sex: Male

DRUGS (16)
  1. BYETTA [Suspect]
     Indication: TYPE 2 DIABETES MELLITUS
     Dosage: UNK, unknown
     Route: 058
  2. BYETTA [Suspect]
     Dosage: UNK, unknown
     Route: 058
     Dates: start: 20071221
  3. BYETTA [Suspect]
     Dosage: 10 ug, bid
     Route: 058
     Dates: start: 20080227
  4. ACTOS [Concomitant]
     Indication: TYPE 2 DIABETES MELLITUS
     Dosage: 45 mg, qd
     Route: 048
  5. AMARYL [Concomitant]
     Indication: TYPE 2 DIABETES MELLITUS
     Dosage: 4 mg, qd
     Route: 058
  6. CIALIS [Concomitant]
     Dosage: 20 mg, qd
     Route: 048
  7. COREG [Concomitant]
     Indication: HYPERTENSION
     Dosage: 12.5 mg, bid
     Route: 048
  8. DIOVAN [Concomitant]
     Indication: HYPERTENSION
     Dosage: UNK, unknown
  9. LACTULOSE [Concomitant]
     Dosage: 20 g, bid
     Route: 048
  10. OMEPRAZOLE [Concomitant]
     Dosage: 20 mg, qd
     Route: 048
  11. PERCOCET                           /00867901/ [Concomitant]
     Route: 048
  12. POTASSIUM CHLORIDE [Concomitant]
     Dosage: 10 mEq, qd
     Route: 048
  13. RANITIDINE [Concomitant]
     Dosage: 150 mg, bid
     Route: 048
  14. VENLAFAXINE [Concomitant]
     Dosage: 75 mg, bid
     Route: 048
  15. ZESTORETIC [Concomitant]
     Route: 048
  16. ZOCOR [Concomitant]
     Indication: HYPERLIPIDAEMIA
     Dosage: 40 mg, qd
     Route: 048

REACTIONS (1)
  - Pancreatitis [Recovered/Resolved]
